FAERS Safety Report 21662337 (Version 1)
Quarter: 2022Q4

REPORT INFORMATION
  Report Type: Spontaneous
  Country: DE (occurrence: DE)
  Receive Date: 20221130
  Receipt Date: 20221130
  Transmission Date: 20230112
  Serious: Yes (Hospitalization)
  Sender: FDA-Public Use
  Company Number: None

PATIENT
  Age: 84 Year
  Sex: Female

DRUGS (15)
  1. APIXABAN [Suspect]
     Active Substance: APIXABAN
     Indication: Atrial fibrillation
     Dosage: 2.5 MG, 1-0-1-0
  2. PREDNISOLONE [Suspect]
     Active Substance: PREDNISOLONE
     Indication: Rheumatic disorder
     Dosage: 5 MG, 1-0-0-0
  3. AMLODIPINE [Concomitant]
     Active Substance: AMLODIPINE BESYLATE
     Dosage: 10 MG, 1-0-0-0
  4. SIMVASTATIN [Concomitant]
     Active Substance: SIMVASTATIN
     Dosage: 20 MG, 0-0-1-0
  5. ALLOPURINOL [Concomitant]
     Active Substance: ALLOPURINOL
     Dosage: 100 MG, 1-0-0-0
  6. METOPROLOL [Concomitant]
     Active Substance: METOPROLOL
     Dosage: 47.5 MG, 1-0-0-0
  7. LEVETIRACETAM [Concomitant]
     Active Substance: LEVETIRACETAM
     Dosage: 500 MG, 1-0-1-0
  8. CHOLECALCIFEROL [Concomitant]
     Active Substance: CHOLECALCIFEROL
     Dosage: 20000 IU, EVERY 2 WEEKS
  9. TORSEMIDE [Concomitant]
     Active Substance: TORSEMIDE
     Dosage: 10 MG, 1.5-1-0-0
  10. RAMIPRIL [Concomitant]
     Active Substance: RAMIPRIL
     Dosage: 5 MG, 1-0-1-0
  11. VIGANTOL [Concomitant]
     Dosage: 500 IU, 1-0-0-0
  12. PANTOPRAZOLE [Concomitant]
     Active Substance: PANTOPRAZOLE
     Dosage: 40 MG, 1-0-1-0
  13. CALCIUM [Concomitant]
     Active Substance: CALCIUM
     Dosage: 500, 1000 MG/IE, 1-0-0-0
  14. METAMIZOLE [Concomitant]
     Active Substance: METAMIZOLE
     Dosage: 40 GTT, AS REQUIRED FOUR TIMES FORTY DROPS
  15. ALENDRONIC ACID [Concomitant]
     Active Substance: ALENDRONIC ACID
     Dosage: 70 MG, SUNDAYS

REACTIONS (8)
  - Fatigue [Unknown]
  - Haematemesis [Unknown]
  - Haematochezia [Unknown]
  - Haemoglobin decreased [Unknown]
  - Hypotonia [Unknown]
  - Melaena [Unknown]
  - Asthenia [Unknown]
  - Pallor [Unknown]
